FAERS Safety Report 23472600 (Version 2)
Quarter: 2024Q1

REPORT INFORMATION
  Report Type: Report from Study
  Country: IN (occurrence: IN)
  Receive Date: 20240202
  Receipt Date: 20240313
  Transmission Date: 20240409
  Serious: Yes (Other)
  Sender: FDA-Public Use
  Company Number: IN-REGENERON PHARMACEUTICALS, INC.-2024-025647

PATIENT
  Age: 4 Year
  Sex: Female

DRUGS (4)
  1. POZELIMAB [Suspect]
     Active Substance: POZELIMAB
     Indication: CHAPLE syndrome
     Dosage: 30 MG/KG, SINGLE
     Route: 042
  2. POZELIMAB [Suspect]
     Active Substance: POZELIMAB
     Dosage: 200 MG, WEEKLY
     Route: 058
  3. MENINGOCOCCAL POLYSACCHARIDE VACCINE A NOS [Concomitant]
     Active Substance: MENINGOCOCCAL POLYSACCHARIDE VACCINE A\NEISSERIA MENINGITIDIS GROUP A CAPSULAR POLYSACCHARIDE ANTIGE
     Indication: Product used for unknown indication
  4. PREDNISOLONE [Concomitant]
     Active Substance: PREDNISOLONE
     Indication: Product used for unknown indication

REACTIONS (1)
  - Seizure [Recovered/Resolved]

NARRATIVE: CASE EVENT DATE: 20221101
